FAERS Safety Report 8410734-X (Version None)
Quarter: 2012Q2

REPORT INFORMATION
  Report Type: 
  Country: None (occurrence: None)
  Receive Date: 20120323
  Receipt Date: 20111201
  Transmission Date: 20120825
  Serious: Yes (Hospitalization)
  Sender: FDA-Public Use
  Company Number: 163-21880-11120212

PATIENT
  Age: 64 Year
  Sex: Male

DRUGS (13)
  1. REVLIMID [Suspect]
     Indication: MULTIPLE MYELOMA
     Dosage: SEE IMAGE
     Route: 048
     Dates: start: 20081101
  2. REVLIMID [Suspect]
     Indication: MULTIPLE MYELOMA
     Dosage: SEE IMAGE
     Route: 048
     Dates: start: 20110901
  3. REVLIMID [Suspect]
     Indication: MULTIPLE MYELOMA
     Dosage: SEE IMAGE
     Route: 048
     Dates: start: 20090701
  4. REVLIMID [Suspect]
     Indication: MULTIPLE MYELOMA
     Dosage: SEE IMAGE
     Route: 048
     Dates: start: 20100101
  5. REVLIMID [Suspect]
     Indication: MULTIPLE MYELOMA
     Dosage: SEE IMAGE
     Route: 048
     Dates: start: 20050101
  6. KADIAN (MORPHINE SULFATE) (UNKNOWN) [Concomitant]
  7. MIRAPEX (PRAMIPEXOLE DIHYDROCHLORIDE) (UNKNOWN) [Concomitant]
  8. COUMADIN [Concomitant]
  9. DECADRON [Concomitant]
  10. PERCOCET [Concomitant]
  11. LYRICA (PREGABABLIN) (UNKNOWN) [Concomitant]
  12. ATIVAN [Concomitant]
  13. CELEXA (CITALOPRAM HYDROBROMIDE) (UNKNOWN) [Concomitant]

REACTIONS (1)
  - PNEUMONIA [None]
